FAERS Safety Report 10595067 (Version 1)
Quarter: 2014Q4

REPORT INFORMATION
  Report Type: Spontaneous
  Country: US (occurrence: None)
  Receive Date: 20141119
  Receipt Date: 20141119
  Transmission Date: 20150529
  Serious: Yes (Disabling)
  Sender: FDA-Public Use
  Company Number: None

PATIENT
  Age: 50 Year
  Sex: Female
  Weight: 54.43 kg

DRUGS (1)
  1. CYMBALTA [Suspect]
     Active Substance: DULOXETINE HYDROCHLORIDE
     Indication: DEPRESSION
     Dosage: 3 CAPSULES, AT BEDTIME, TAKEN BY MOUTH
     Route: 048

REACTIONS (6)
  - Injury [None]
  - Fall [None]
  - Limb injury [None]
  - Somnambulism [None]
  - Insomnia [None]
  - Sleep disorder [None]
